FAERS Safety Report 4287815-8 (Version None)
Quarter: 2004Q1

REPORT INFORMATION
  Report Type: 
  Country: None (occurrence: None)
  Receive Date: 20040209
  Receipt Date: 20031002
  Transmission Date: 20041129
  Serious: No
  Sender: FDA-Public Use
  Company Number: US-GLAXOSMITHKLINE-A0428430A

PATIENT
  Age: 55 Year
  Sex: Male

DRUGS (7)
  1. PAXIL [Suspect]
     Dosage: 25MG PER DAY
     Route: 048
  2. LEVOTHROID [Concomitant]
  3. CARDURA [Concomitant]
  4. MULTI-VITAMIN [Concomitant]
  5. PREVACID [Concomitant]
  6. IBUPROFEN [Concomitant]
  7. ADVAIR DISKUS 100/50 [Concomitant]

REACTIONS (4)
  - DIZZINESS [None]
  - DRUG WITHDRAWAL SYNDROME [None]
  - SEXUAL DYSFUNCTION [None]
  - SINUS PAIN [None]
